FAERS Safety Report 8333280-0 (Version None)
Quarter: 2012Q2

REPORT INFORMATION
  Report Type: 
  Country: None (occurrence: None)
  Receive Date: 20120503
  Receipt Date: 20120424
  Transmission Date: 20120825
  Serious: Yes (Other)
  Sender: FDA-Public Use
  Company Number: BR-ASTRAZENECA-2012SE27095

PATIENT
  Sex: Female

DRUGS (3)
  1. NEXIUM [Suspect]
     Indication: DYSPEPSIA
     Route: 048
     Dates: start: 20120415, end: 20120417
  2. NEXIUM [Suspect]
     Indication: GASTROOESOPHAGEAL REFLUX DISEASE
     Route: 048
     Dates: start: 20120415, end: 20120417
  3. YAZ [Concomitant]
     Indication: ORAL CONTRACEPTION
     Route: 048

REACTIONS (5)
  - SKIN BURNING SENSATION [None]
  - COUGH [None]
  - RASH ERYTHEMATOUS [None]
  - SWELLING [None]
  - PRURITUS GENERALISED [None]
